FAERS Safety Report 6439822-4 (Version None)
Quarter: 2009Q4

REPORT INFORMATION
  Report Type: 
  Country: None (occurrence: None)
  Receive Date: 20091112
  Receipt Date: 20091112
  Transmission Date: 20100525
  Serious: Yes (Hospitalization)
  Sender: FDA-Public Use
  Company Number: None

PATIENT
  Sex: Female
  Weight: 108.8633 kg

DRUGS (1)
  1. PRISTIQ [Suspect]
     Indication: DEPRESSION
     Dosage: 50MG DAILY PO
     Route: 048
     Dates: start: 20080701, end: 20091001

REACTIONS (6)
  - BLOOD CHOLESTEROL INCREASED [None]
  - BLOOD TRIGLYCERIDES INCREASED [None]
  - FLUSHING [None]
  - HYPERTENSION [None]
  - MYOCARDIAL INFARCTION [None]
  - VENTRICULAR EXTRASYSTOLES [None]
